FAERS Safety Report 7641708-4 (Version None)
Quarter: 2011Q3

REPORT INFORMATION
  Report Type: 
  Country: None (occurrence: None)
  Receive Date: 20110728
  Receipt Date: 20110720
  Transmission Date: 20111222
  Serious: Yes (Hospitalization)
  Sender: FDA-Public Use
  Company Number: FR-BAXTER-2011BH024157

PATIENT
  Age: 29 Year
  Sex: Male

DRUGS (2)
  1. GAMMAGARD LIQUID [Suspect]
     Indication: IMMUNODEFICIENCY
     Route: 042
     Dates: start: 20100921, end: 20100921
  2. GAMMAGARD LIQUID [Suspect]
     Route: 042
     Dates: start: 20100101

REACTIONS (1)
  - ANGIOEDEMA [None]
